FAERS Safety Report 15661794 (Version 1)
Quarter: 2018Q4

REPORT INFORMATION
  Report Type: Spontaneous
  Country: IT (occurrence: IT)
  Receive Date: 20181127
  Receipt Date: 20181127
  Transmission Date: 20190205
  Serious: Yes (Other)
  Sender: FDA-Public Use
  Company Number: IT-SA-2018SA154450

PATIENT
  Age: 66 Year
  Sex: Male

DRUGS (7)
  1. NORVASC [Concomitant]
     Active Substance: AMLODIPINE BESYLATE
     Dosage: UNK UNK, UNK
     Route: 048
  2. ELEKTRA MAX [Concomitant]
     Dosage: UNK UNK, UNK
     Route: 048
  3. BISOPROLOLO TEVA [Concomitant]
     Active Substance: BISOPROLOL FUMARATE
     Dosage: UNK UNK, UNK
     Route: 048
  4. ACIDO ACETILSALICILICO SANDOZ [Concomitant]
     Active Substance: ASPIRIN
     Dosage: UNK UNK, UNK
     Route: 048
  5. SIMVASTATINA ABC [Concomitant]
     Active Substance: SIMVASTATIN
     Dosage: UNK UNK, UNK
     Route: 048
  6. FENOFIBRATO DOC [Concomitant]
     Dosage: UNK UNK, UNK
     Route: 048
  7. CLOPIDOGREL BISULFATE. [Suspect]
     Active Substance: CLOPIDOGREL BISULFATE
     Dosage: UNK UNK, UNK
     Route: 048

REACTIONS (1)
  - Lip oedema [Recovering/Resolving]

NARRATIVE: CASE EVENT DATE: 20180322
